FAERS Safety Report 7618311-5 (Version None)
Quarter: 2011Q3

REPORT INFORMATION
  Report Type: 
  Country: None (occurrence: None)
  Receive Date: 20110718
  Receipt Date: 20110713
  Transmission Date: 20111222
  Serious: Yes (Hospitalization)
  Sender: FDA-Public Use
  Company Number: CZ-ROCHE-786082

PATIENT
  Sex: Male

DRUGS (8)
  1. ACIDUM FOLICUM [Concomitant]
  2. MEDROL [Concomitant]
  3. METHOTREXATE SODIUM [Concomitant]
  4. COXTRAL [Concomitant]
     Indication: PAIN
  5. APO-OME [Concomitant]
  6. CALTRATE PLUS [Concomitant]
  7. TOCILIZUMAB [Suspect]
     Indication: RHEUMATOID ARTHRITIS
     Route: 042
     Dates: start: 20100903, end: 20110318
  8. TOCILIZUMAB [Suspect]
     Route: 042
     Dates: start: 20110624

REACTIONS (1)
  - HIP ARTHROPLASTY [None]
